FAERS Safety Report 15920572 (Version 1)
Quarter: 2019Q1

REPORT INFORMATION
  Report Type: Spontaneous
  Country: US (occurrence: US)
  Receive Date: 20190205
  Receipt Date: 20190205
  Transmission Date: 20190417
  Serious: Yes (Other)
  Sender: FDA-Public Use
  Company Number: PHHY2019US023066

PATIENT
  Sex: Male

DRUGS (2)
  1. TRIAMCINOLONE [Suspect]
     Active Substance: TRIAMCINOLONE
     Indication: CLUSTER HEADACHE
     Dosage: 40 MG/ML, UNK
     Route: 065
  2. LIDOCAINE. [Suspect]
     Active Substance: LIDOCAINE
     Indication: CLUSTER HEADACHE
     Dosage: 9 ML, UNK
     Route: 065

REACTIONS (2)
  - Product use in unapproved indication [Unknown]
  - Osteonecrosis [Unknown]
